FAERS Safety Report 5313727-4 (Version None)
Quarter: 2007Q2

REPORT INFORMATION
  Report Type: 
  Country: None (occurrence: None)
  Receive Date: 20070425
  Receipt Date: 20070419
  Transmission Date: 20071010
  Serious: No
  Sender: FDA-Public Use
  Company Number: 2007-153556-NL

PATIENT
  Age: 38 Year
  Sex: Female

DRUGS (2)
  1. ETONOGESTREL (BATCH #:  599375/619103) [Suspect]
     Dosage: DF
     Dates: end: 20050601
  2. ETONOGESTREL (BATCH #:  599375/619103) [Suspect]
     Dosage: DF
     Dates: start: 20050601, end: 20070412

REACTIONS (3)
  - BREAST CANCER FEMALE [None]
  - DEVICE MIGRATION [None]
  - METASTASES TO LYMPH NODES [None]
